FAERS Safety Report 5764794-5 (Version None)
Quarter: 2008Q2

REPORT INFORMATION
  Report Type: 
  Country: None (occurrence: None)
  Receive Date: 20080610
  Receipt Date: 20080610
  Transmission Date: 20081010
  Serious: No
  Sender: FDA-Public Use
  Company Number: None

PATIENT
  Age: 3 Year
  Sex: Female
  Weight: 13 kg

DRUGS (3)
  1. GAMMAGARD LIQUID 10% BAXTER [Suspect]
     Indication: KAWASAKI'S DISEASE
     Dosage: 2 GM/KG  ONCE  IV DRIP
     Route: 041
     Dates: start: 20080503, end: 20080503
  2. GAMUNEX [Suspect]
     Dates: start: 20080430, end: 20080430
  3. ASPIRIN [Concomitant]

REACTIONS (2)
  - ANAEMIA [None]
  - COOMBS TEST POSITIVE [None]
